FAERS Safety Report 22630602 (Version 2)
Quarter: 2023Q2

REPORT INFORMATION
  Report Type: Report from Study
  Country: CN (occurrence: CN)
  Receive Date: 20230622
  Receipt Date: 20230628
  Transmission Date: 20230721
  Serious: Yes (Life-Threatening)
  Sender: FDA-Public Use
  Company Number: CN-PFIZER INC-PV202300108391

PATIENT
  Age: 35 Year
  Sex: Female
  Weight: 60 kg

DRUGS (13)
  1. CYTARABINE [Suspect]
     Active Substance: CYTARABINE
     Indication: Acute myeloid leukaemia
     Dosage: QD
     Route: 041
     Dates: start: 20230412, end: 20230416
  2. CYTARABINE [Suspect]
     Active Substance: CYTARABINE
     Dosage: Q12H
     Route: 041
     Dates: start: 20230602, end: 20230602
  3. CYTARABINE [Suspect]
     Active Substance: CYTARABINE
     Dosage: Q12H
     Route: 041
     Dates: start: 20230604, end: 20230604
  4. CYTARABINE [Suspect]
     Active Substance: CYTARABINE
     Dosage: Q12H
     Route: 041
     Dates: start: 20230606, end: 20230606
  5. INVESTIGATIONAL PRODUCT [Suspect]
     Active Substance: INVESTIGATIONAL PRODUCT
     Indication: Acute myeloid leukaemia
     Dosage: UNK
     Route: 041
     Dates: start: 20230411, end: 20230411
  6. INVESTIGATIONAL PRODUCT [Suspect]
     Active Substance: INVESTIGATIONAL PRODUCT
     Dosage: UNK
     Route: 041
     Dates: start: 20230412, end: 20230418
  7. INVESTIGATIONAL PRODUCT [Suspect]
     Active Substance: INVESTIGATIONAL PRODUCT
     Dosage: UNK
     Route: 041
     Dates: start: 20230601, end: 20230601
  8. INVESTIGATIONAL PRODUCT [Suspect]
     Active Substance: INVESTIGATIONAL PRODUCT
     Dosage: UNK
     Route: 041
     Dates: start: 20230602, end: 20230608
  9. MITOXANTRONE [Concomitant]
     Active Substance: MITOXANTRONE HYDROCHLORIDE
     Indication: Acute myeloid leukaemia
     Dosage: 25/12.5 MILLIGRAM PER MILLILITRE, QD
     Route: 041
     Dates: start: 20230412, end: 20230416
  10. ETOPOSIDE [Concomitant]
     Active Substance: ETOPOSIDE
     Indication: Acute myeloid leukaemia
     Dosage: 0.1/5 GRAM PER MILLILITRE, QD
     Route: 041
     Dates: start: 20230412, end: 20230414
  11. POSACONAZOLE [Concomitant]
     Active Substance: POSACONAZOLE
     Dosage: UNK
     Dates: start: 20230512, end: 20230613
  12. POSTERIOR PITUITARY [Concomitant]
     Dosage: UNK
     Dates: start: 20230612, end: 20230614
  13. AMPHOTERICIN B CHOLESTERYL SULFATE [Concomitant]
     Active Substance: AMPHOTERICIN B CHOLESTERYL SULFATE
     Dosage: UNK
     Dates: start: 20230612, end: 20230614

REACTIONS (1)
  - Epilepsy [Not Recovered/Not Resolved]

NARRATIVE: CASE EVENT DATE: 20230614
